FAERS Safety Report 8393035-8 (Version None)
Quarter: 2012Q2

REPORT INFORMATION
  Report Type: 
  Country: None (occurrence: None)
  Receive Date: 20120529
  Receipt Date: 20120320
  Transmission Date: 20120825
  Serious: No
  Sender: FDA-Public Use
  Company Number: US-ABBOTT-12P-163-0916994-00

PATIENT
  Sex: Male

DRUGS (4)
  1. ANDROGEL [Suspect]
     Indication: BLOOD TESTOSTERONE DECREASED
     Route: 061
     Dates: start: 20120201, end: 20120301
  2. BENICAR [Concomitant]
     Indication: HYPERTENSION
  3. FENOFIBRATE [Concomitant]
     Indication: BLOOD TRIGLYCERIDES INCREASED
  4. AMBIEN [Concomitant]
     Indication: INSOMNIA

REACTIONS (1)
  - DRUG INEFFECTIVE [None]
